FAERS Safety Report 6996923-X (Version None)
Quarter: 2010Q3

REPORT INFORMATION
  Report Type: 
  Country: None (occurrence: None)
  Receive Date: 20100918
  Receipt Date: 20090805
  Transmission Date: 20110219
  Serious: No
  Sender: FDA-Public Use
  Company Number: US-WYE-H10475709

PATIENT
  Sex: Female
  Weight: 68.1 kg

DRUGS (4)
  1. EFFEXOR XR [Suspect]
     Indication: ANXIETY
     Dosage: UNKNOWN DOSE
     Route: 048
     Dates: start: 20080101, end: 20090101
  2. EFFEXOR XR [Suspect]
     Dosage: TAPERING DOWN FROM 150 MG FOR OVER A MONTH
     Route: 048
     Dates: start: 20090101, end: 20090101
  3. EFFEXOR XR [Suspect]
     Route: 048
     Dates: start: 20090101
  4. LEVOXYL [Concomitant]

REACTIONS (4)
  - ABDOMINAL PAIN [None]
  - CHILLS [None]
  - DIARRHOEA [None]
  - DRUG WITHDRAWAL SYNDROME [None]
